FAERS Safety Report 6251997-9 (Version None)
Quarter: 2009Q2

REPORT INFORMATION
  Report Type: 
  Country: None (occurrence: None)
  Receive Date: 20090630
  Receipt Date: 20040927
  Transmission Date: 20091009
  Serious: Yes (Hospitalization)
  Sender: FDA-Public Use
  Company Number: US-ROCHE-638346

PATIENT
  Sex: Male

DRUGS (16)
  1. ENFUVIRTIDE [Suspect]
     Route: 065
     Dates: start: 20040206, end: 20060101
  2. KALETRA [Concomitant]
     Dates: start: 20020702, end: 20030811
  3. VIDEX EC [Concomitant]
     Dates: start: 20020702, end: 20020703
  4. VIDEX EC [Concomitant]
     Dates: start: 20020703, end: 20030811
  5. VIDEX EC [Concomitant]
     Dosage: FREQUENCY REPORTED AS HS
     Dates: start: 20030903, end: 20060721
  6. ZERIT [Concomitant]
     Dates: start: 20020702, end: 20030212
  7. AGENERASE [Concomitant]
     Dates: start: 20030212, end: 20051028
  8. VIREAD [Concomitant]
     Dosage: FREQUENCY REPORTED AS HS
     Dates: start: 20030212, end: 20060721
  9. REYATAZ [Concomitant]
     Dosage: FREQUENCY REPORTED AS QD
     Dates: start: 20030913, end: 20040206
  10. LEXIVA [Concomitant]
     Dosage: FREQUENCY REPORTED AS QD
     Dates: start: 20040206, end: 20060721
  11. NORVIR [Concomitant]
     Dosage: FREQUENCY REPORTED AS QD
     Dates: start: 20040206, end: 20060721
  12. ISONIAZID [Concomitant]
     Dosage: FREQUENCY REPORTED AS QD
     Dates: start: 20011108, end: 20060721
  13. RIFABUTIN [Concomitant]
     Dates: start: 20011108, end: 20060721
  14. BACTRIM DS [Concomitant]
     Dosage: FREQUENCY REPORTED AS QD
     Dates: start: 20030212, end: 20060327
  15. BACTRIM DS [Concomitant]
     Dates: start: 20060327, end: 20060410
  16. DOXYCYCLINE [Concomitant]
     Dates: start: 20031110, end: 20040906

REACTIONS (1)
  - ANGIOEDEMA [None]
